FAERS Safety Report 25871404 (Version 1)
Quarter: 2025Q4

REPORT INFORMATION
  Report Type: Spontaneous
  Country: EU (occurrence: EU)
  Receive Date: 20251001
  Receipt Date: 20251001
  Transmission Date: 20260118
  Serious: Yes (Life-Threatening, Other)
  Sender: MERCK SHARP & DOHME LLC
  Company Number: None

PATIENT
  Age: 14 Month
  Sex: Male
  Weight: 12 kg

DRUGS (1)
  1. VARIVAX [Suspect]
     Active Substance: VARICELLA-ZOSTER VIRUS STRAIN OKA/MERCK LIVE ANTIGEN
     Indication: Varicella immunisation
     Dosage: TIME INTERVAL: TOTAL: FIRST DOSE.?APPLIED INTRAMUSCULARLY IN THIGH.
     Route: 030
     Dates: start: 20250128, end: 20250128

REACTIONS (5)
  - Encephalitis [Not Recovered/Not Resolved]
  - Laryngitis [Not Recovered/Not Resolved]
  - Laryngitis [Recovered/Resolved]
  - Balance disorder [Not Recovered/Not Resolved]
  - Pyrexia [Unknown]

NARRATIVE: CASE EVENT DATE: 20250128
